FAERS Safety Report 19906511 (Version 1)
Quarter: 2021Q4

REPORT INFORMATION
  Report Type: Spontaneous
  Country: US (occurrence: US)
  Receive Date: 20211001
  Receipt Date: 20211001
  Transmission Date: 20220304
  Serious: No
  Sender: FDA-Public Use
  Company Number: US-SANOFI-00789524

PATIENT
  Age: 84 Year
  Sex: Male

DRUGS (1)
  1. DUPIXENT [Suspect]
     Active Substance: DUPILUMAB
     Indication: Autoimmune disorder
     Dosage: 300 MG, QOW

REACTIONS (2)
  - Unevaluable event [Unknown]
  - Product use in unapproved indication [Unknown]
